FAERS Safety Report 15432086 (Version 2)
Quarter: 2019Q1

REPORT INFORMATION
  Report Type: Report from Study
  Country: None (occurrence: US)
  Receive Date: 20180926
  Receipt Date: 20190214
  Transmission Date: 20190417
  Serious: Yes (Hospitalization, Other)
  Sender: FDA-Public Use
  Company Number: US-ABBVIE-18K-163-2419243-00

PATIENT
  Sex: Female
  Weight: 61.29 kg

DRUGS (5)
  1. FISH OIL [Concomitant]
     Active Substance: FISH OIL
     Indication: SUPPLEMENTATION THERAPY
  2. VITAMIN C [Concomitant]
     Active Substance: ASCORBIC ACID
     Indication: INFECTION PROPHYLAXIS
  3. HUMIRA [Suspect]
     Active Substance: ADALIMUMAB
     Indication: CROHN^S DISEASE
     Route: 058
     Dates: start: 2013, end: 201806
  4. HUMIRA [Suspect]
     Active Substance: ADALIMUMAB
     Route: 058
     Dates: start: 20180704
  5. CALCIUM [Concomitant]
     Active Substance: CALCIUM
     Indication: MINERAL SUPPLEMENTATION

REACTIONS (4)
  - Crohn^s disease [Recovering/Resolving]
  - Arthritis [Recovering/Resolving]
  - Back pain [Recovered/Resolved]
  - Gastric disorder [Recovering/Resolving]

NARRATIVE: CASE EVENT DATE: 2016
